FAERS Safety Report 8564585-6 (Version None)
Quarter: 2012Q3

REPORT INFORMATION
  Report Type: 
  Country: None (occurrence: None)
  Receive Date: 20120727
  Receipt Date: 20120727
  Transmission Date: 20120928
  Serious: Yes (Other)
  Sender: FDA-Public Use
  Company Number: None

PATIENT
  Age: 24 Year
  Sex: Female
  Weight: 103.4201 kg

DRUGS (2)
  1. NORGESTIMATE AND ETHINYL ESTRADIOL [Suspect]
     Indication: CONTRACEPTION
     Dosage: 0.18MG/35MCG 1 POQD X 7 DAY PO
     Route: 048
     Dates: start: 20120101, end: 20120128
  2. ORTHO TRI-CYCLEN [Suspect]
     Indication: CONTRACEPTION
     Dosage: 0.215MG/35MCG, 0.25MG/35MCG 1 POQD X 7 DAY PO
     Route: 048

REACTIONS (4)
  - NAUSEA [None]
  - DRUG HYPERSENSITIVITY [None]
  - VOMITING [None]
  - HEADACHE [None]
